FAERS Safety Report 6628442-4 (Version None)
Quarter: 2010Q1

REPORT INFORMATION
  Report Type: 
  Country: None (occurrence: None)
  Receive Date: 20100311
  Receipt Date: 20100226
  Transmission Date: 20100710
  Serious: Yes (Other)
  Sender: FDA-Public Use
  Company Number: US-PFIZER INC-2003039135

PATIENT
  Sex: Female
  Weight: 68.04 kg

DRUGS (2)
  1. ZOLOFT [Suspect]
     Indication: DEPRESSION
     Dosage: DAILY
     Route: 048
     Dates: start: 20000601
  2. NEURONTIN [Suspect]
     Indication: GRAND MAL CONVULSION
     Dosage: 300MG OR 400MG THREE TIMES DAILY
     Route: 048
     Dates: start: 20010801

REACTIONS (14)
  - ABDOMINAL PAIN UPPER [None]
  - COMA [None]
  - CONVULSION [None]
  - COUGH [None]
  - DEPRESSION [None]
  - DIARRHOEA [None]
  - FATIGUE [None]
  - GRAND MAL CONVULSION [None]
  - HYPERHIDROSIS [None]
  - HYPOAESTHESIA [None]
  - MENOPAUSAL SYMPTOMS [None]
  - NERVOUSNESS [None]
  - RETCHING [None]
  - WITHDRAWAL SYNDROME [None]
